FAERS Safety Report 5695681-9 (Version None)
Quarter: 2008Q2

REPORT INFORMATION
  Report Type: 
  Country: None (occurrence: None)
  Receive Date: 20080407
  Receipt Date: 20080307
  Transmission Date: 20081010
  Serious: No
  Sender: FDA-Public Use
  Company Number: US-BAYER-200816873NA

PATIENT
  Age: 18 Year
  Sex: Female
  Weight: 58 kg

DRUGS (2)
  1. YAZ [Suspect]
     Indication: OVARIAN CYST
     Route: 048
     Dates: start: 20080302, end: 20080303
  2. VITAMINS NOS [Concomitant]

REACTIONS (2)
  - MIGRAINE [None]
  - WITHDRAWAL BLEED [None]
